FAERS Safety Report 4905623-9 (Version None)
Quarter: 2006Q1

REPORT INFORMATION
  Report Type: 
  Country: None (occurrence: None)
  Receive Date: 20060203
  Receipt Date: 20060120
  Transmission Date: 20060701
  Serious: Yes (Hospitalization)
  Sender: FDA-Public Use
  Company Number: A-US2004-05570

PATIENT
  Age: 22 Year
  Sex: Female

DRUGS (18)
  1. TRACLEER [Suspect]
     Indication: PULMONARY HYPERTENSION
     Dosage: 125 + 62.5 MG, BID, ORAL
     Route: 048
     Dates: start: 20040201
  2. COUMADIN [Concomitant]
  3. PREVACID [Concomitant]
  4. RHINOCORT [Concomitant]
  5. MYTUSSIN AC (GUAIFENESIN) [Concomitant]
  6. CALCIUM (CALCIUM) [Concomitant]
  7. BENZOATE [Concomitant]
  8. TRAMADIN (TRAMADOL HYDROCHLORIDE) [Concomitant]
  9. FERROUS SULFATE TAB [Concomitant]
  10. FOLIC ACID [Concomitant]
  11. ZYRTEC [Concomitant]
  12. PREDNISONE [Concomitant]
  13. BACTRIM [Concomitant]
  14. DIFLUCAN (FLUCONAZOLE) [Concomitant]
  15. PROMETHAZINE [Concomitant]
  16. FOSAMAX [Concomitant]
  17. PEQUIN [Concomitant]
  18. LORAL [Concomitant]

REACTIONS (12)
  - ALANINE AMINOTRANSFERASE INCREASED [None]
  - ASPARTATE AMINOTRANSFERASE INCREASED [None]
  - CONDITION AGGRAVATED [None]
  - DEPRESSION [None]
  - LIVER FUNCTION TEST ABNORMAL [None]
  - LUNG INFECTION [None]
  - MIXED CONNECTIVE TISSUE DISEASE [None]
  - OEDEMA [None]
  - PROTEINURIA [None]
  - PYREXIA [None]
  - RASH MACULO-PAPULAR [None]
  - SINUS TACHYCARDIA [None]
